FAERS Safety Report 8909169 (Version 1)
Quarter: 2012Q4

REPORT INFORMATION
  Report Type: Spontaneous
  Country: US (occurrence: None)
  Receive Date: 20121113
  Receipt Date: 20121113
  Transmission Date: 20130627
  Serious: No
  Sender: FDA-Public Use
  Company Number: None

PATIENT

DRUGS (1)
  1. ISONIAZID [Suspect]
     Dates: start: 20110823, end: 20111020

REACTIONS (3)
  - Drug-induced liver injury [None]
  - Pruritus [None]
  - Nausea [None]
